FAERS Safety Report 6355850-1 (Version None)
Quarter: 2009Q3

REPORT INFORMATION
  Report Type: 
  Country: None (occurrence: None)
  Receive Date: 20090911
  Receipt Date: 20090911
  Transmission Date: 20100115
  Serious: Yes (Other)
  Sender: FDA-Public Use
  Company Number: None

PATIENT
  Sex: Female
  Weight: 73.6 kg

DRUGS (1)
  1. ARIMIDEX [Suspect]
     Indication: BREAST CANCER
     Dosage: 1 MG DAILY
     Dates: start: 20081001, end: 20090601

REACTIONS (15)
  - ABDOMINAL PAIN LOWER [None]
  - ARTHRALGIA [None]
  - BACK PAIN [None]
  - BONE PAIN [None]
  - HEADACHE [None]
  - LOOSE TOOTH [None]
  - MYALGIA [None]
  - NECK PAIN [None]
  - OROPHARYNGEAL PAIN [None]
  - PAIN [None]
  - PAIN IN EXTREMITY [None]
  - PAIN OF SKIN [None]
  - PRURITUS [None]
  - TOOTH FRACTURE [None]
  - TOOTHACHE [None]
